FAERS Safety Report 9338970 (Version 1)
Quarter: 2013Q2

REPORT INFORMATION
  Report Type: Spontaneous
  Country: US (occurrence: None)
  Receive Date: 20130529
  Receipt Date: 20130529
  Transmission Date: 20140414
  Serious: Yes (Hospitalization, Other)
  Sender: FDA-Public Use
  Company Number: 2013036205

PATIENT
  Age: 69 Year
  Sex: Male

DRUGS (4)
  1. IMMUNOGLOBULIN [Suspect]
  2. IMMUNOGLOBULIN [Suspect]
  3. DEXAMETHASONE (DEXAMETHASONE) [Suspect]
  4. DEXAMETHASONE (DEXAMETHASONE) [Suspect]

REACTIONS (2)
  - Bronchopulmonary aspergillosis [None]
  - Pulmonary mass [None]
